FAERS Safety Report 18857715 (Version 2)
Quarter: 2021Q1

REPORT INFORMATION
  Report Type: Spontaneous
  Country: US (occurrence: US)
  Receive Date: 20210208
  Receipt Date: 20210302
  Transmission Date: 20210420
  Serious: Yes (Hospitalization, Disabling)
  Sender: FDA-Public Use
  Company Number: US-ALVOGEN-2021-ALVOGEN-116421

PATIENT
  Age: 69 Year
  Sex: Male

DRUGS (4)
  1. TOPIRAMATE. [Concomitant]
     Active Substance: TOPIRAMATE
     Indication: PRODUCT USED FOR UNKNOWN INDICATION
  2. NORTRIPTYLINE [Concomitant]
     Active Substance: NORTRIPTYLINE
     Indication: PRODUCT USED FOR UNKNOWN INDICATION
  3. PROPRANOLOL [Concomitant]
     Active Substance: PROPRANOLOL HYDROCHLORIDE
     Indication: PRODUCT USED FOR UNKNOWN INDICATION
  4. GABAPENTIN. [Suspect]
     Active Substance: GABAPENTIN
     Indication: NEUROPATHY PERIPHERAL
     Dosage: (2400 MG) 4 TIMES DAILY

REACTIONS (16)
  - Toxicity to various agents [Unknown]
  - Muscle spasms [Unknown]
  - Binocular eye movement disorder [Unknown]
  - Muscle contractions involuntary [Recovered/Resolved]
  - Fall [Unknown]
  - Action tremor [Recovering/Resolving]
  - Tremor [Recovered/Resolved]
  - Diplopia [Recovered/Resolved]
  - Pain in extremity [Recovered/Resolved]
  - Aggression [Unknown]
  - Gait disturbance [Recovering/Resolving]
  - Myoclonus [Recovering/Resolving]
  - Walking disability [Recovered/Resolved]
  - Tremor [Recovering/Resolving]
  - Myokymia [Recovering/Resolving]
  - Prescribed overdose [Unknown]
